FAERS Safety Report 8370419-5 (Version None)
Quarter: 2012Q2

REPORT INFORMATION
  Report Type: 
  Country: None (occurrence: None)
  Receive Date: 20120518
  Receipt Date: 20120516
  Transmission Date: 20120825
  Serious: No
  Sender: FDA-Public Use
  Company Number: US-PFIZER INC-2012119581

PATIENT
  Sex: Male
  Weight: 72 kg

DRUGS (8)
  1. ZANTAC [Concomitant]
     Dosage: 150 MG, UNK
  2. FISH OIL [Concomitant]
     Dosage: UNK
  3. MULTI-VITAMINS [Concomitant]
     Dosage: UNK
  4. FLOMAX [Concomitant]
     Dosage: UNK
  5. CO-Q-10 [Concomitant]
     Dosage: UNK
  6. CALCIUM [Concomitant]
     Dosage: UNK
  7. LIPITOR [Suspect]
     Indication: BLOOD CHOLESTEROL INCREASED
     Dosage: 20 MG, TWICE A DAY
     Route: 048
  8. ASPIRIN [Concomitant]
     Dosage: 81 MG, UNK

REACTIONS (2)
  - URTICARIA [None]
  - HYPERSENSITIVITY [None]
